FAERS Safety Report 4665523-9 (Version None)
Quarter: 2005Q2

REPORT INFORMATION
  Report Type: 
  Country: None (occurrence: None)
  Receive Date: 20050519
  Receipt Date: 20040910
  Transmission Date: 20051028
  Serious: No
  Sender: FDA-Public Use
  Company Number: US-BRISTOL-MYERS SQUIBB COMPANY-12698874

PATIENT
  Age: 64 Year
  Sex: Male
  Weight: 180 kg

DRUGS (1)
  1. MITOMYCIN [Suspect]
     Indication: BLADDER CANCER
     Route: 066
     Dates: start: 20040902, end: 20040902

REACTIONS (3)
  - ACCIDENTAL EXPOSURE [None]
  - BURNING SENSATION [None]
  - RASH PAPULAR [None]
